FAERS Safety Report 11358646 (Version 1)
Quarter: 2015Q3

REPORT INFORMATION
  Report Type: Spontaneous
  Country: US (occurrence: US)
  Receive Date: 20150803
  Receipt Date: 20150803
  Transmission Date: 20151125
  Serious: No
  Sender: FDA-Public Use
  Company Number: US-ELI_LILLY_AND_COMPANY-US200811005357

PATIENT
  Age: 32 Year
  Sex: Female

DRUGS (5)
  1. MELLARIL [Concomitant]
     Active Substance: THIORIDAZINE HYDROCHLORIDE
  2. ZYPREXA [Suspect]
     Active Substance: OLANZAPINE
     Dosage: 7.5 MG, UNK
  3. ZYPREXA [Suspect]
     Active Substance: OLANZAPINE
     Dosage: 2.5 MG, UNK
  4. ZYPREXA [Suspect]
     Active Substance: OLANZAPINE
     Dosage: 10 MG, UNK
  5. ZYPREXA [Suspect]
     Active Substance: OLANZAPINE
     Indication: SCHIZOPHRENIA, PARANOID TYPE
     Dosage: 7.5 MG, UNK

REACTIONS (4)
  - Lethargy [Recovered/Resolved]
  - Exposure during pregnancy [Recovered/Resolved]
  - Blood glucose increased [Unknown]
  - Weight increased [Unknown]
